FAERS Safety Report 7531169-8 (Version None)
Quarter: 2011Q2

REPORT INFORMATION
  Report Type: 
  Country: None (occurrence: None)
  Receive Date: 20110608
  Receipt Date: 20110526
  Transmission Date: 20111010
  Serious: Yes (Death)
  Sender: FDA-Public Use
  Company Number: NO-JNJFOC-20110601997

PATIENT
  Age: 8 Year
  Sex: Male

DRUGS (8)
  1. CISPLATIN [Suspect]
     Indication: BONE SARCOMA
     Dosage: CYCLE1
     Route: 065
  2. DOXORUBICIN HCL [Suspect]
     Dosage: CYCLE 1
     Route: 042
  3. METHOTREXATE [Suspect]
     Dosage: CYCLE 1
     Route: 065
  4. DOXORUBICIN HCL [Suspect]
     Indication: BONE SARCOMA
     Dosage: CYCLE 2
     Route: 042
  5. IFOSFAMIDE [Suspect]
     Dosage: CYCLE 2
     Route: 065
  6. CISPLATIN [Suspect]
     Dosage: CYCLE 2
     Route: 065
  7. IFOSFAMIDE [Suspect]
     Indication: BONE SARCOMA
     Dosage: CYCLE 1
     Route: 065
  8. METHOTREXATE [Suspect]
     Indication: BONE SARCOMA
     Dosage: CYCLE 2
     Route: 065

REACTIONS (2)
  - SEPTIC SHOCK [None]
  - FEBRILE NEUTROPENIA [None]
